FAERS Safety Report 5393753-X (Version None)
Quarter: 2007Q3

REPORT INFORMATION
  Report Type: 
  Country: None (occurrence: None)
  Receive Date: 20070719
  Receipt Date: 20070719
  Transmission Date: 20080115
  Serious: Yes (Hospitalization)
  Sender: FDA-Public Use
  Company Number: None

PATIENT
  Age: 59 Year
  Sex: Male
  Weight: 94.9 kg

DRUGS (25)
  1. XIGRIS [Suspect]
  2. SODIUM CHL [Concomitant]
  3. HEPARIN [Concomitant]
  4. DEXTROSE [Concomitant]
  5. FOSEMIDE [Concomitant]
  6. REGULAR INSULIN [Concomitant]
  7. MORPHINE [Concomitant]
  8. HYDROCORTISONE [Concomitant]
  9. FILGRASTIM [Concomitant]
  10. ACETAMINOPHEN [Concomitant]
  11. HYDROCHLORPERAZINE [Concomitant]
  12. POTASSIUM PHOSPHATES [Concomitant]
  13. FAMOTIDINE [Concomitant]
  14. MAGNESIUM SULFATE [Concomitant]
  15. CALCIUM GLUCONATE [Concomitant]
  16. SODIUM BICARBONATE [Concomitant]
  17. DOBUTAMINE HCL [Concomitant]
  18. NOREPINEPHRINE [Concomitant]
  19. FENTANYL [Concomitant]
  20. GENTAMICIN [Concomitant]
  21. CASPOFUNGIN ACETATE [Concomitant]
  22. LINEZOLID [Concomitant]
  23. CEFEPIME [Concomitant]
  24. PROPOFOL [Concomitant]
  25. METRONIDAZOLE [Concomitant]

REACTIONS (1)
  - HAEMORRHAGE [None]
